FAERS Safety Report 25864208 (Version 1)
Quarter: 2025Q3

REPORT INFORMATION
  Report Type: Spontaneous
  Country: JP (occurrence: JP)
  Receive Date: 20250930
  Receipt Date: 20250930
  Transmission Date: 20251020
  Serious: Yes (Other)
  Sender: NOVARTIS
  Company Number: JP-002147023-NVSJ2025JP009632

PATIENT
  Age: 39 Year
  Sex: Female

DRUGS (2)
  1. DABRAFENIB [Suspect]
     Active Substance: DABRAFENIB
     Indication: Glioblastoma
     Route: 065
  2. TRAMETINIB [Suspect]
     Active Substance: TRAMETINIB
     Indication: Glioblastoma
     Route: 065

REACTIONS (5)
  - Vogt-Koyanagi-Harada disease [Recovering/Resolving]
  - Vision blurred [Unknown]
  - Anterior chamber cell [Unknown]
  - Keratic precipitates [Unknown]
  - Retinal degeneration [Unknown]
